FAERS Safety Report 7304535-3 (Version None)
Quarter: 2011Q1

REPORT INFORMATION
  Report Type: 
  Country: None (occurrence: None)
  Receive Date: 20110221
  Receipt Date: 20100921
  Transmission Date: 20110831
  Serious: Yes (Other)
  Sender: FDA-Public Use
  Company Number: PHHY2010BR82559

PATIENT
  Age: 86 Year
  Sex: Female

DRUGS (1)
  1. DIOVAN TRIPLE [Suspect]

REACTIONS (1)
  - LEFT VENTRICULAR HYPERTROPHY [None]
